FAERS Safety Report 5892696-2 (Version None)
Quarter: 2008Q3

REPORT INFORMATION
  Report Type: 
  Country: None (occurrence: None)
  Receive Date: 20080923
  Receipt Date: 20080917
  Transmission Date: 20090109
  Serious: Yes (Other)
  Sender: FDA-Public Use
  Company Number: PHEH2008US08100

PATIENT
  Sex: Male

DRUGS (1)
  1. ZOMETA [Suspect]
     Indication: METASTASES TO BONE
     Dosage: 4 MG, ONCE/SINGLE
     Route: 042
     Dates: start: 20080730

REACTIONS (5)
  - CHILLS [None]
  - PAIN IN EXTREMITY [None]
  - PYREXIA [None]
  - RASH PAPULAR [None]
  - SKIN EXFOLIATION [None]
